FAERS Safety Report 9847254 (Version 1)
Quarter: 2014Q1

REPORT INFORMATION
  Report Type: Spontaneous
  Country: US (occurrence: US)
  Receive Date: 20140127
  Receipt Date: 20140127
  Transmission Date: 20141002
  Serious: Yes (Hospitalization)
  Sender: FDA-Public Use
  Company Number: US-DYAX CORP.-2013DX000059

PATIENT
  Age: 47 Year
  Sex: Female
  Weight: 99.88 kg

DRUGS (11)
  1. KALBITOR [Suspect]
     Indication: HEREDITARY ANGIOEDEMA
     Route: 058
     Dates: start: 201303, end: 201303
  2. KALBITOR [Suspect]
     Route: 058
     Dates: start: 201303, end: 201303
  3. KALBITOR [Suspect]
     Route: 058
     Dates: start: 201303, end: 201303
  4. KALBITOR [Suspect]
     Route: 058
     Dates: start: 20130324, end: 20130324
  5. KALBITOR [Suspect]
     Route: 058
     Dates: start: 201103
  6. VISTARIL [Concomitant]
     Indication: PRODUCT USED FOR UNKNOWN INDICATION
     Dates: end: 201303
  7. CINRYZE [Concomitant]
     Indication: HEREDITARY ANGIOEDEMA
     Dosage: DAILY DOSE: 1000 UNITS, DRUG ROUTE: INTRAVENOUS
     Route: 042
     Dates: start: 201106
  8. ATENOLOL [Concomitant]
     Indication: HYPERTENSION
     Route: 048
     Dates: start: 2007
  9. METFORMIN [Concomitant]
     Indication: DIABETES MELLITUS
     Route: 048
     Dates: start: 2007
  10. MIRAPEX [Concomitant]
     Indication: RESTLESS LEGS SYNDROME
     Route: 048
     Dates: start: 2007
  11. FIRAZYR [Concomitant]
     Indication: PRODUCT USED FOR UNKNOWN INDICATION
     Dates: start: 20130322

REACTIONS (5)
  - Hereditary angioedema [Recovered/Resolved]
  - Stress [Unknown]
  - Anxiety [Unknown]
  - Sleep disorder [Unknown]
  - Pain [Unknown]
